FAERS Safety Report 16085807 (Version 3)
Quarter: 2019Q1

REPORT INFORMATION
  Report Type: Spontaneous
  Country: CA (occurrence: CA)
  Receive Date: 20190318
  Receipt Date: 20190318
  Transmission Date: 20190418
  Serious: Yes (Other)
  Sender: FDA-Public Use
  Company Number: PHHY2019CA057227

PATIENT
  Age: 58 Year
  Sex: Male

DRUGS (17)
  1. VITAMIIN C [Concomitant]
     Active Substance: ASCORBIC ACID
     Indication: PRODUCT USED FOR UNKNOWN INDICATION
     Route: 065
  2. STATEX [Concomitant]
     Indication: ARTHRALGIA
     Dosage: 30 MG, UNK
     Route: 065
  3. STATEX [Concomitant]
     Dosage: 60 MG, UNK
     Route: 065
  4. METHOTREXATE. [Suspect]
     Active Substance: METHOTREXATE
     Route: 065
  5. CALCIPOTRIENE AND BETAMETHASONE DIPROPIONATE [Concomitant]
     Active Substance: BETAMETHASONE DIPROPIONATE\CALCIPOTRIENE
     Indication: PRODUCT USED FOR UNKNOWN INDICATION
     Route: 065
  6. OTEZLA [Concomitant]
     Active Substance: APREMILAST
     Indication: PRODUCT USED FOR UNKNOWN INDICATION
     Route: 065
  7. STELARA [Concomitant]
     Active Substance: USTEKINUMAB
     Indication: PRODUCT USED FOR UNKNOWN INDICATION
     Route: 058
  8. COSENTYX [Suspect]
     Active Substance: SECUKINUMAB
     Dosage: 300 MG, UNK
     Route: 058
  9. DICLOFENAC [Suspect]
     Active Substance: DICLOFENAC
     Indication: PRODUCT USED FOR UNKNOWN INDICATION
     Route: 065
  10. CALCIUM [Suspect]
     Active Substance: CALCIUM
     Route: 065
  11. ENBREL [Concomitant]
     Active Substance: ETANERCEPT
     Indication: PRODUCT USED FOR UNKNOWN INDICATION
     Dosage: (THERAPY DURATION WAS 07 YEARS)
     Route: 065
  12. COSENTYX [Suspect]
     Active Substance: SECUKINUMAB
     Indication: PSORIATIC ARTHROPATHY
     Dosage: 300 MG, QW
     Route: 058
  13. CELEBREX [Concomitant]
     Active Substance: CELECOXIB
     Indication: PRODUCT USED FOR UNKNOWN INDICATION
  14. IBUPROFEN. [Concomitant]
     Active Substance: IBUPROFEN
     Indication: PRODUCT USED FOR UNKNOWN INDICATION
     Route: 065
  15. CELEBREX [Concomitant]
     Active Substance: CELECOXIB
     Indication: PRODUCT USED FOR UNKNOWN INDICATION
     Route: 065
  16. NAPROXEN. [Concomitant]
     Active Substance: NAPROXEN
     Indication: PRODUCT USED FOR UNKNOWN INDICATION
     Route: 065
  17. PREDNISONE. [Concomitant]
     Active Substance: PREDNISONE
     Indication: PRODUCT USED FOR UNKNOWN INDICATION
     Route: 065

REACTIONS (36)
  - Muscle swelling [Recovering/Resolving]
  - Musculoskeletal stiffness [Recovering/Resolving]
  - Pruritus [Recovering/Resolving]
  - Anxiety [Recovering/Resolving]
  - Energy increased [Recovering/Resolving]
  - Hyperhidrosis [Recovering/Resolving]
  - Nasal congestion [Recovering/Resolving]
  - Pain [Recovering/Resolving]
  - Rash erythematous [Recovering/Resolving]
  - Blood pressure decreased [Recovering/Resolving]
  - Fatigue [Recovering/Resolving]
  - Pain in extremity [Recovering/Resolving]
  - Skin irritation [Recovering/Resolving]
  - Lung infection [Recovering/Resolving]
  - Dehydration [Recovering/Resolving]
  - Lethargy [Recovering/Resolving]
  - Localised infection [Recovering/Resolving]
  - Psoriasis [Recovering/Resolving]
  - Nasopharyngitis [Recovering/Resolving]
  - Rash [Recovering/Resolving]
  - Inappropriate schedule of product administration [Recovering/Resolving]
  - Grip strength decreased [Recovering/Resolving]
  - Influenza [Recovering/Resolving]
  - Skin lesion [Recovering/Resolving]
  - Withdrawal syndrome [Recovering/Resolving]
  - Dermatitis [Recovering/Resolving]
  - Feeling abnormal [Recovering/Resolving]
  - Headache [Recovering/Resolving]
  - Joint swelling [Recovering/Resolving]
  - Psoriatic arthropathy [Recovering/Resolving]
  - Arthritis [Recovering/Resolving]
  - Gait disturbance [Recovering/Resolving]
  - Inflammation [Recovering/Resolving]
  - Mass [Recovering/Resolving]
  - Mobility decreased [Recovering/Resolving]
  - Drug effect incomplete [Recovering/Resolving]
